FAERS Safety Report 21994373 (Version 2)
Quarter: 2025Q4

REPORT INFORMATION
  Report Type: Spontaneous
  Country: US (occurrence: US)
  Receive Date: 20230215
  Receipt Date: 20251013
  Transmission Date: 20260117
  Serious: Yes (Hospitalization)
  Sender: MYLAN
  Company Number: US-MYLANLABS-2023M1015170

PATIENT
  Age: 62 Year
  Sex: Male

DRUGS (13)
  1. PREDNISONE [Suspect]
     Active Substance: PREDNISONE
     Indication: Prophylaxis
     Dosage: UNK
  2. PREDNISONE [Suspect]
     Active Substance: PREDNISONE
     Dosage: UNK (RECEIVED THE NIGHT PRIOR AND MORNING OF THE APHERESIS)
  3. PREDNISONE [Suspect]
     Active Substance: PREDNISONE
     Dosage: 20 MILLIGRAM, BID (1ST DOSE)
  4. PREDNISONE [Suspect]
     Active Substance: PREDNISONE
     Dosage: 20 MILLIGRAM, Q6H ( 2ND DOSE AT 6H)
  5. PREDNISONE [Suspect]
     Active Substance: PREDNISONE
     Dosage: 20 MILLIGRAM, QH (3RD DOSE AT 1HR)
  6. PREDNISONE [Suspect]
     Active Substance: PREDNISONE
     Dosage: 50 MILLIGRAM, BID (1ST DOSE AT 12H)
  7. PREDNISONE [Suspect]
     Active Substance: PREDNISONE
     Dosage: 50 MILLIGRAM, Q6H (2ND DOSE AT 6H)
  8. PREDNISONE [Suspect]
     Active Substance: PREDNISONE
     Dosage: 50 MILLIGRAM, QH (, 3RD DOSE AT 1HR)
  9. CETIRIZINE [Suspect]
     Active Substance: CETIRIZINE HYDROCHLORIDE
     Indication: Prophylaxis
     Dosage: RECEIVED THE NIGHT PRIOR AND MORNING OF THE APHERESIS
  10. CETIRIZINE [Suspect]
     Active Substance: CETIRIZINE HYDROCHLORIDE
     Dosage: 10 MILLIGRAM, BID
  11. MONTELUKAST [Suspect]
     Active Substance: MONTELUKAST
     Indication: Prophylaxis
     Dosage: UNK (RECEIVED THE NIGHT PRIOR AND MORNING OF THE APHERESIS)
  12. MONTELUKAST [Suspect]
     Active Substance: MONTELUKAST
     Dosage: 10 MILLIGRAM, QD (AT NIGHT)
  13. ASPIRIN [Suspect]
     Active Substance: ASPIRIN
     Indication: Prophylaxis
     Dosage: 650 MILLIGRAM, 1.5 HOURS

REACTIONS (1)
  - Drug ineffective [Unknown]
